FAERS Safety Report 15576388 (Version 1)
Quarter: 2018Q4

REPORT INFORMATION
  Report Type: Spontaneous
  Country: CN (occurrence: CN)
  Receive Date: 20181101
  Receipt Date: 20181101
  Transmission Date: 20190205
  Serious: Yes (Other)
  Sender: FDA-Public Use
  Company Number: CN-BAUSCH-BL-2018-029486

PATIENT
  Age: 52 Year
  Sex: Male

DRUGS (6)
  1. DEXAMETHASONE. [Suspect]
     Active Substance: DEXAMETHASONE
     Indication: SPINAL CORD INJURY
     Route: 065
  2. DEXAMETHASONE. [Suspect]
     Active Substance: DEXAMETHASONE
     Indication: PARAPLEGIA
  3. DEXAMETHASONE. [Suspect]
     Active Substance: DEXAMETHASONE
     Indication: LUMBAR SPINAL STENOSIS
  4. MANNITOL. [Suspect]
     Active Substance: MANNITOL
     Indication: LUMBAR SPINAL STENOSIS
  5. MANNITOL. [Suspect]
     Active Substance: MANNITOL
     Indication: SPINAL CORD INJURY
     Route: 065
  6. MANNITOL. [Suspect]
     Active Substance: MANNITOL
     Indication: PARAPLEGIA

REACTIONS (1)
  - Treatment failure [Unknown]
